FAERS Safety Report 11362075 (Version 2)
Quarter: 2015Q3

REPORT INFORMATION
  Report Type: Spontaneous
  Country: US (occurrence: US)
  Receive Date: 20150810
  Receipt Date: 20150819
  Transmission Date: 20151125
  Serious: Yes (Death, Other)
  Sender: FDA-Public Use
  Company Number: US-BAXTER-2015BAX042628

PATIENT
  Age: 79 Year
  Sex: Male

DRUGS (5)
  1. METRONIDAZOLE INJECTION, USP [Suspect]
     Active Substance: METRONIDAZOLE
     Indication: ABDOMINAL SEPSIS
     Route: 042
  2. CEFEPIME [Suspect]
     Active Substance: CEFEPIME HYDROCHLORIDE
     Indication: LUNG INFECTION
     Dosage: 1
     Route: 042
  3. DAPTOMYCIN. [Suspect]
     Active Substance: DAPTOMYCIN
     Indication: ABDOMINAL SEPSIS
     Route: 065
  4. VANCOMYCIN INJECTION, USP [Suspect]
     Active Substance: VANCOMYCIN
     Indication: LUNG INFECTION
     Route: 042
  5. VANCOMYCIN [Suspect]
     Active Substance: VANCOMYCIN
     Indication: ABDOMINAL SEPSIS
     Route: 048

REACTIONS (5)
  - Respiratory failure [Fatal]
  - Respiratory failure [Unknown]
  - Pneumonia [Unknown]
  - Splenic abscess [Unknown]
  - Clostridium difficile infection [Unknown]
